FAERS Safety Report 7293381-5 (Version None)
Quarter: 2011Q1

REPORT INFORMATION
  Report Type: 
  Country: None (occurrence: None)
  Receive Date: 20110204
  Receipt Date: 20110126
  Transmission Date: 20110831
  Serious: Yes (Other)
  Sender: FDA-Public Use
  Company Number: 2011MA000813

PATIENT
  Sex: Male

DRUGS (3)
  1. PREV MEDS [Concomitant]
  2. METOCLOPRAMIDE [Suspect]
     Indication: PRODUCT USED FOR UNKNOWN INDICATION
     Dosage: PO
     Route: 048
     Dates: start: 20060601, end: 20090901
  3. CON MEDS [Concomitant]

REACTIONS (8)
  - ECONOMIC PROBLEM [None]
  - DYSKINESIA [None]
  - CONDITION AGGRAVATED [None]
  - PARKINSON'S DISEASE [None]
  - INJURY [None]
  - EXTRAPYRAMIDAL DISORDER [None]
  - TARDIVE DYSKINESIA [None]
  - EMOTIONAL DISORDER [None]
